FAERS Safety Report 5508044-3 (Version None)
Quarter: 2007Q4

REPORT INFORMATION
  Report Type: 
  Country: None (occurrence: None)
  Receive Date: 20071106
  Receipt Date: 20071025
  Transmission Date: 20080405
  Serious: Yes (Other)
  Sender: FDA-Public Use
  Company Number: CZ-PFIZER INC-2007087388

PATIENT
  Age: 54 Year
  Sex: Male

DRUGS (12)
  1. ZOLOFT [Suspect]
     Indication: DEPRESSION
     Route: 048
  2. ZOLOFT [Suspect]
     Route: 048
     Dates: start: 20070701, end: 20070101
  3. SIMVASTATIN [Concomitant]
     Route: 048
  4. LEXAURIN [Concomitant]
     Route: 048
  5. ASCORUTIN [Concomitant]
     Route: 048
  6. AULIN [Concomitant]
     Route: 048
  7. PREDNISON [Concomitant]
     Route: 048
  8. ANOPYRIN [Concomitant]
     Route: 048
  9. BUDESONIDE [Concomitant]
     Route: 048
  10. SPIRIVA [Concomitant]
     Route: 048
  11. VENTOLIN [Concomitant]
     Route: 048
  12. CITALOPRAM HYDROBROMIDE [Concomitant]
     Route: 048

REACTIONS (6)
  - FATIGUE [None]
  - FEELING DRUNK [None]
  - ROAD TRAFFIC ACCIDENT [None]
  - SOMNOLENCE [None]
  - SOPOR [None]
  - VISION BLURRED [None]
